FAERS Safety Report 17188898 (Version 1)
Quarter: 2019Q4

REPORT INFORMATION
  Report Type: Spontaneous
  Country: US (occurrence: US)
  Receive Date: 20191222
  Receipt Date: 20191222
  Transmission Date: 20200122
  Serious: Yes (Other)
  Sender: FDA-Public Use
  Company Number: US-ABBVIE-19K-163-3202696-00

PATIENT
  Sex: Female
  Weight: 66.28 kg

DRUGS (1)
  1. CREON [Suspect]
     Active Substance: PANCRELIPASE AMYLASE\PANCRELIPASE LIPASE\PANCRELIPASE PROTEASE
     Indication: PANCREATIC FAILURE
     Dosage: AROUND 5-7 TIMES A DAY
     Route: 048
     Dates: start: 20191122, end: 20191215

REACTIONS (4)
  - Auditory disorder [Unknown]
  - Abdominal pain [Not Recovered/Not Resolved]
  - Stent placement [Unknown]
  - Dyspnoea [Not Recovered/Not Resolved]

NARRATIVE: CASE EVENT DATE: 2019
